FAERS Safety Report 5638202-9 (Version None)
Quarter: 2008Q1

REPORT INFORMATION
  Report Type: 
  Country: None (occurrence: None)
  Receive Date: 20080221
  Receipt Date: 20080217
  Transmission Date: 20080703
  Serious: Yes (Other)
  Sender: FDA-Public Use
  Company Number: 2008S1001132

PATIENT
  Age: 78 Year
  Sex: Male
  Weight: 88.4514 kg

DRUGS (8)
  1. FLEET GLYCERIN ADULT SUPPOSITORIES [Suspect]
     Indication: CONSTIPATION
     Dosage: 2 GM; X1; RTL
     Route: 054
     Dates: start: 20080217, end: 20080217
  2. FISH OIL [Concomitant]
  3. RENAGEL [Concomitant]
  4. LIPITOR [Concomitant]
  5. HYOSCYAMINE [Concomitant]
  6. STOOL SOFTENER [Concomitant]
  7. SENSIPAR [Concomitant]
  8. VITE-PROBITE [Concomitant]

REACTIONS (2)
  - DIVERTICULITIS [None]
  - DRUG INEFFECTIVE [None]
